FAERS Safety Report 7547050-4 (Version None)
Quarter: 2011Q2

REPORT INFORMATION
  Report Type: 
  Country: None (occurrence: None)
  Receive Date: 20110607
  Receipt Date: 20110601
  Transmission Date: 20111010
  Serious: Yes (Other)
  Sender: FDA-Public Use
  Company Number: 2011SP025390

PATIENT
  Age: 49 Year
  Sex: Male

DRUGS (3)
  1. PROZAC [Concomitant]
  2. SAPHRIS [Suspect]
     Indication: BIPOLAR DISORDER
     Dosage: 5 MG;BID;SL
     Route: 060
     Dates: end: 20110501
  3. DEPAKOTE [Concomitant]

REACTIONS (3)
  - DYSPNOEA [None]
  - RASH [None]
  - PHARYNGEAL OEDEMA [None]
